FAERS Safety Report 8271162-3 (Version None)
Quarter: 2012Q2

REPORT INFORMATION
  Report Type: 
  Country: None (occurrence: None)
  Receive Date: 20120410
  Receipt Date: 20120329
  Transmission Date: 20120825
  Serious: Yes (Death)
  Sender: FDA-Public Use
  Company Number: FR-PFIZER INC-2012056139

PATIENT
  Age: 66 Year
  Sex: Female
  Weight: 50 kg

DRUGS (6)
  1. PREDNISOLONE [Concomitant]
     Indication: TRACHEITIS
     Dosage: 1X/DAY
     Route: 048
     Dates: start: 20110801, end: 20120221
  2. PREDNISOLONE [Concomitant]
     Indication: BACK PAIN
     Dosage: 50 MG, 1X/DAY
     Route: 048
     Dates: start: 20120221, end: 20120225
  3. FERROUS SULFATE TAB [Concomitant]
     Indication: ANAEMIA
     Dosage: 80 MG, 1X/DAY
     Route: 048
     Dates: start: 20111201, end: 20120207
  4. CRIZOTINIB [Suspect]
     Indication: NON-SMALL CELL LUNG CANCER
     Dosage: 250 MG, 2X/DAY
     Route: 048
     Dates: start: 20120112, end: 20120227
  5. PREDNISOLONE [Concomitant]
     Dosage: 20 MG, 1X/DAY
     Route: 048
     Dates: start: 20120225, end: 20120227
  6. HELICIDINE [Concomitant]
     Indication: TRACHEITIS
     Dosage: 4 TABLE SPOONS, 1X/DAY
     Route: 048
     Dates: start: 20120222, end: 20120225

REACTIONS (1)
  - COGNITIVE DISORDER [None]
